FAERS Safety Report 5900877-4 (Version None)
Quarter: 2008Q3

REPORT INFORMATION
  Report Type: 
  Country: None (occurrence: None)
  Receive Date: 20080929
  Receipt Date: 20080924
  Transmission Date: 20090109
  Serious: Yes (Other)
  Sender: FDA-Public Use
  Company Number: US-TEVA-177920USA

PATIENT
  Age: 18 Year
  Sex: Female

DRUGS (1)
  1. MEDROXYPROGESTERONE ACETATE 150 MG/ML [Suspect]
     Indication: CONTRACEPTION
     Dosage: ONCE
     Dates: start: 20080731, end: 20080731

REACTIONS (2)
  - POLYMYOSITIS [None]
  - RHEUMATOID ARTHRITIS [None]
